FAERS Safety Report 6759415-9 (Version None)
Quarter: 2010Q2

REPORT INFORMATION
  Report Type: 
  Country: None (occurrence: None)
  Receive Date: 20100603
  Receipt Date: 20100524
  Transmission Date: 20101027
  Serious: Yes (Death)
  Sender: FDA-Public Use
  Company Number: 602355

PATIENT
  Age: 48 Year
  Sex: Female

DRUGS (3)
  1. HEPARIN SODIUM [Suspect]
     Indication: PULMONARY EMBOLISM
     Dosage: INTRAVENOUS
     Route: 042
  2. HEPARIN SODIUM [Suspect]
     Indication: PULMONARY EMBOLISM
     Dosage: SUBCUTANEOUS
     Route: 058
  3. LASIX [Concomitant]

REACTIONS (27)
  - ABDOMINAL WALL DISORDER [None]
  - ADRENAL INSUFFICIENCY [None]
  - ASCITES [None]
  - CARDIOMEGALY [None]
  - COAGULOPATHY [None]
  - DIZZINESS [None]
  - FALL [None]
  - FLUID OVERLOAD [None]
  - GASTROINTESTINAL HAEMORRHAGE [None]
  - GENERAL PHYSICAL HEALTH DETERIORATION [None]
  - HAEMATOCRIT DECREASED [None]
  - HAEMOGLOBIN DECREASED [None]
  - HEPARIN-INDUCED THROMBOCYTOPENIA [None]
  - HYPOTENSION [None]
  - MEAN CELL VOLUME INCREASED [None]
  - OEDEMA [None]
  - OEDEMA PERIPHERAL [None]
  - PULMONARY CONGESTION [None]
  - PULMONARY EMBOLISM [None]
  - RASH MACULO-PAPULAR [None]
  - RED CELL DISTRIBUTION WIDTH INCREASED [None]
  - RESPIRATORY DISTRESS [None]
  - SEPTIC SHOCK [None]
  - SKIN DISCOLOURATION [None]
  - SKIN LESION [None]
  - SKIN NECROSIS [None]
  - VENOUS THROMBOSIS [None]
